FAERS Safety Report 9311525 (Version 1)
Quarter: 2013Q2

REPORT INFORMATION
  Report Type: Spontaneous
  Country: PL (occurrence: PL)
  Receive Date: 20130528
  Receipt Date: 20130528
  Transmission Date: 20140414
  Serious: Yes (Death)
  Sender: FDA-Public Use
  Company Number: PL-BIOMARINAP-PL-2013-100858

PATIENT
  Age: 10 Year
  Sex: Male
  Weight: 2.1 kg

DRUGS (1)
  1. ALDURAZYME [Suspect]
     Indication: MUCOPOLYSACCHARIDOSIS I
     Dosage: UNK UNK, QW
     Route: 041
     Dates: start: 2003, end: 20130502

REACTIONS (1)
  - Death [Fatal]
